FAERS Safety Report 5213073-3 (Version None)
Quarter: 2007Q1

REPORT INFORMATION
  Report Type: 
  Country: None (occurrence: None)
  Receive Date: 20070119
  Receipt Date: 20070111
  Transmission Date: 20070707
  Serious: Yes (Hospitalization)
  Sender: FDA-Public Use
  Company Number: 2007CG00099

PATIENT
  Age: 20607 Day
  Sex: Female

DRUGS (10)
  1. OMEPRAZOLE [Suspect]
     Route: 042
     Dates: start: 20061115
  2. DIPRIVAN [Suspect]
     Indication: ANAESTHESIA
     Route: 042
     Dates: start: 20061115, end: 20061115
  3. ACETAMINOPHEN W/ PROPOXYPHENE HCL [Suspect]
     Route: 048
     Dates: end: 20061129
  4. MYOLASTAN [Suspect]
     Route: 048
     Dates: end: 20061129
  5. AUGMENTIN '125' [Suspect]
     Route: 042
     Dates: start: 20061115, end: 20061115
  6. PERFALGAN [Suspect]
     Route: 042
     Dates: start: 20061115
  7. HYPNOVEL [Suspect]
     Indication: ANAESTHESIA
     Dates: start: 20061115, end: 20061115
  8. SUFENTA [Suspect]
     Indication: ANAESTHESIA
     Dates: start: 20061115, end: 20061115
  9. NIMBEX [Suspect]
     Indication: ANAESTHESIA
     Dates: start: 20061115, end: 20061115
  10. LOVENOX [Suspect]
     Dates: start: 20061115

REACTIONS (2)
  - CUTANEOUS LUPUS ERYTHEMATOSUS [None]
  - ERYTHEMA MULTIFORME [None]
